FAERS Safety Report 10574996 (Version 1)
Quarter: 2014Q4

REPORT INFORMATION
  Report Type: Spontaneous
  Country: IT (occurrence: IT)
  Receive Date: 20141111
  Receipt Date: 20141111
  Transmission Date: 20150529
  Serious: Yes (Other)
  Sender: FDA-Public Use
  Company Number: IT-AUROBINDO-AUR-APL-2014-11765

PATIENT
  Age: 60 Year
  Sex: Female

DRUGS (2)
  1. AMOXICILLINA TABLETS 1G [Suspect]
     Active Substance: AMOXICILLIN
     Indication: BRONCHITIS
     Dosage: 1 G, DAILY
     Route: 048
     Dates: start: 20141004, end: 20141004
  2. SOTALEX [Concomitant]
     Active Substance: SOTALOL
     Indication: PRODUCT USED FOR UNKNOWN INDICATION
     Dosage: 1 DF, UNK
     Route: 048

REACTIONS (4)
  - Anaphylactic reaction [Recovering/Resolving]
  - Malaise [Recovering/Resolving]
  - Blood gases abnormal [Unknown]
  - Pruritus generalised [Recovering/Resolving]

NARRATIVE: CASE EVENT DATE: 20141004
